FAERS Safety Report 23116629 (Version 1)
Quarter: 2023Q4

REPORT INFORMATION
  Report Type: Spontaneous
  Country: BR (occurrence: BR)
  Receive Date: 20231027
  Receipt Date: 20231027
  Transmission Date: 20240110
  Serious: Yes (Hospitalization)
  Sender: FDA-Public Use
  Company Number: BR-GLAXOSMITHKLINE-BR2023AMR145099

PATIENT

DRUGS (3)
  1. BENLYSTA [Suspect]
     Active Substance: BELIMUMAB
     Indication: Systemic lupus erythematosus
     Dosage: UNK
     Route: 042
     Dates: start: 2009
  2. PREDNISONE [Concomitant]
     Active Substance: PREDNISONE
     Indication: Product used for unknown indication
     Dosage: 20 MG, QD
  3. HYDROXYCHLOROQUINE [Concomitant]
     Active Substance: HYDROXYCHLOROQUINE
     Indication: Product used for unknown indication
     Dosage: 400 MG, QD

REACTIONS (7)
  - Hospitalisation [Unknown]
  - Alopecia [Unknown]
  - Arthralgia [Unknown]
  - Dyspnoea [Unknown]
  - Skin disorder [Unknown]
  - Inappropriate schedule of product administration [Unknown]
  - Product availability issue [Unknown]

NARRATIVE: CASE EVENT DATE: 20230101
